FAERS Safety Report 7576055-2 (Version None)
Quarter: 2011Q2

REPORT INFORMATION
  Report Type: 
  Country: None (occurrence: None)
  Receive Date: 20110628
  Receipt Date: 20110613
  Transmission Date: 20111010
  Serious: Yes (Hospitalization, Other)
  Sender: FDA-Public Use
  Company Number: US-BAYER-201019356NA

PATIENT
  Age: 30 Year
  Sex: Female
  Weight: 79.365 kg

DRUGS (9)
  1. DOXYCYCLINE [Concomitant]
     Indication: PNEUMONIA
     Dosage: UNK
     Dates: start: 20090901
  2. TRAZODONE HCL [Concomitant]
     Dosage: 50 MG, UNK
     Route: 048
  3. ATIVAN [Concomitant]
     Dosage: 0.5 MG, PRN
     Route: 048
  4. FENTANYL [Concomitant]
     Indication: PAIN
     Dosage: UNK
     Dates: start: 20090923
  5. HEPARIN [Concomitant]
     Dosage: UNK
     Dates: start: 20090901
  6. YAZ [Suspect]
     Indication: CONTRACEPTION
     Dosage: UNK UNK, QD
     Route: 048
     Dates: start: 20070620, end: 20090815
  7. YAZ [Suspect]
     Indication: PREMENSTRUAL SYNDROME
     Dosage: UNK
     Dates: start: 20070719, end: 20090815
  8. PAXIL [Concomitant]
     Dosage: 30 MG, UNK
     Route: 048
  9. ROCEPHIN [Concomitant]
     Indication: PNEUMONIA
     Dosage: UNK
     Dates: start: 20090901

REACTIONS (1)
  - PULMONARY EMBOLISM [None]
